FAERS Safety Report 8454127-8 (Version None)
Quarter: 2012Q2

REPORT INFORMATION
  Report Type: 
  Country: None (occurrence: None)
  Receive Date: 20120620
  Receipt Date: 20120619
  Transmission Date: 20120825
  Serious: Yes (Other)
  Sender: FDA-Public Use
  Company Number: US-PFIZER INC-2012148105

PATIENT
  Sex: Female
  Weight: 84.807 kg

DRUGS (2)
  1. LYRICA [Suspect]
     Dosage: UNK
     Dates: start: 20120601, end: 20120601
  2. LYRICA [Suspect]
     Indication: BACK PAIN
     Dosage: UNK
     Dates: end: 20100101

REACTIONS (1)
  - OEDEMA PERIPHERAL [None]
